FAERS Safety Report 7277411-2 (Version None)
Quarter: 2011Q1

REPORT INFORMATION
  Report Type: 
  Country: None (occurrence: None)
  Receive Date: 20110207
  Receipt Date: 20110128
  Transmission Date: 20110831
  Serious: Yes (Other)
  Sender: FDA-Public Use
  Company Number: US-JNJFOC-20100603287

PATIENT
  Sex: Female

DRUGS (4)
  1. LEVAQUIN [Suspect]
     Indication: BREAST INFECTION
     Route: 048
  2. LEVAQUIN [Suspect]
     Indication: BRONCHITIS
     Route: 048
  3. LEVAQUIN [Suspect]
     Indication: BACTERIAL INFECTION
     Route: 048
  4. CIPROFLOXACIN [Suspect]
     Indication: BREAST INFECTION
     Route: 065

REACTIONS (4)
  - ROTATOR CUFF SYNDROME [None]
  - TENDON DISORDER [None]
  - JOINT SWELLING [None]
  - TENDON INJURY [None]
